FAERS Safety Report 24371415 (Version 1)
Quarter: 2024Q3

REPORT INFORMATION
  Report Type: Spontaneous
  Country: ES (occurrence: ES)
  Receive Date: 20240927
  Receipt Date: 20240927
  Transmission Date: 20241016
  Serious: Yes (Other)
  Sender: PFIZER
  Company Number: ES-ROCHE-3210041

PATIENT
  Age: 40 Year
  Sex: Female
  Weight: 77.9 kg

DRUGS (3)
  1. TRASTUZUMAB [Suspect]
     Active Substance: TRASTUZUMAB
     Indication: Metastatic neoplasm
     Dosage: 630 MG, EVERY 3 WEEKS
     Route: 042
     Dates: start: 20221025, end: 20221025
  2. RUNIMOTAMAB [Suspect]
     Active Substance: RUNIMOTAMAB
     Indication: Metastatic neoplasm
     Dosage: 6.6 MG, EVERY 3 WEEKS(DOSE CONCENTRATION 1.5 MG/ML. TOTAL VOLUME PRIOR TO AE WAS 4.4 ML)
     Route: 042
     Dates: start: 20221026
  3. GOSERELIN ACETATE [Concomitant]
     Active Substance: GOSERELIN ACETATE
     Indication: Contraception
     Dosage: 3.6 MG, 1X/DAY (EVERY MORNING)
     Route: 058
     Dates: start: 20221024

REACTIONS (1)
  - Cytokine release syndrome [Recovered/Resolved]

NARRATIVE: CASE EVENT DATE: 20221027
